FAERS Safety Report 23573238 (Version 1)
Quarter: 2024Q1

REPORT INFORMATION
  Report Type: Spontaneous
  Country: JP (occurrence: JP)
  Receive Date: 20240228
  Receipt Date: 20240228
  Transmission Date: 20240409
  Serious: Yes (Hospitalization, Other)
  Sender: FDA-Public Use
  Company Number: JP-PBT-009038

PATIENT
  Age: 43 Year
  Sex: Male

DRUGS (3)
  1. TACROLIMUS [Interacting]
     Active Substance: TACROLIMUS
     Indication: Systemic lupus erythematosus
     Route: 065
  2. NIRMATRELVIR\RITONAVIR [Interacting]
     Active Substance: NIRMATRELVIR\RITONAVIR
     Indication: COVID-19
     Dosage: 300 MG/100 MG, FOUR TIMES
     Route: 065
  3. TACROLIMUS [Interacting]
     Active Substance: TACROLIMUS
     Indication: Systemic lupus erythematosus
     Route: 065

REACTIONS (6)
  - Drug interaction [Unknown]
  - COVID-19 [Unknown]
  - Toxicity to various agents [Unknown]
  - Immunosuppressant drug level increased [Recovered/Resolved]
  - Product use in unapproved indication [Unknown]
  - Hypomagnesaemia [Unknown]
